FAERS Safety Report 20804006 (Version 3)
Quarter: 2022Q2

REPORT INFORMATION
  Report Type: Spontaneous
  Country: AU (occurrence: AU)
  Receive Date: 20220509
  Receipt Date: 20220621
  Transmission Date: 20220721
  Serious: Yes (Life-Threatening, Hospitalization, Other)
  Sender: FDA-Public Use
  Company Number: AU-SA-SAC20220505000868

PATIENT
  Sex: Male

DRUGS (7)
  1. LIBTAYO [Suspect]
     Active Substance: CEMIPLIMAB-RWLC
     Indication: Skin squamous cell carcinoma metastatic
     Dosage: 350 MG, Q3W
     Route: 042
     Dates: start: 20211222, end: 20220406
  2. METHYLPREDNISOLONE [Concomitant]
     Active Substance: METHYLPREDNISOLONE
     Indication: Product used for unknown indication
     Dosage: UNK
     Route: 042
  3. ACYCLOVIR [Concomitant]
     Active Substance: ACYCLOVIR
     Indication: Product used for unknown indication
     Dosage: UNK
     Route: 042
  4. CORTISOL [HYDROCORTISONE] [Concomitant]
     Indication: Product used for unknown indication
     Dosage: UNK
  5. HYDROCORTISONE [Concomitant]
     Active Substance: HYDROCORTISONE
     Indication: Product used for unknown indication
     Dosage: 50 MG
     Route: 042
  6. SODIUM CHLORIDE [Concomitant]
     Active Substance: SODIUM CHLORIDE
     Indication: Product used for unknown indication
  7. PREDNISOLONE [Concomitant]
     Active Substance: PREDNISOLONE
     Indication: Product used for unknown indication
     Dosage: 25 MG

REACTIONS (26)
  - Fall [Recovering/Resolving]
  - Delirium [Recovering/Resolving]
  - Condition aggravated [Recovering/Resolving]
  - Cellulitis [Recovering/Resolving]
  - Ejection fraction decreased [Recovering/Resolving]
  - Addison^s disease [Recovering/Resolving]
  - Bacterial sepsis [Recovering/Resolving]
  - Stress cardiomyopathy [Recovering/Resolving]
  - Adrenocorticotropic hormone deficiency [Recovering/Resolving]
  - Glucocorticoid deficiency [Recovering/Resolving]
  - Encephalitis [Recovering/Resolving]
  - Lumbar puncture abnormal [Recovering/Resolving]
  - Hypothyroidism [Recovering/Resolving]
  - Head injury [Recovering/Resolving]
  - Loss of consciousness [Recovering/Resolving]
  - Orthostatic hypotension [Recovering/Resolving]
  - Acute kidney injury [Recovered/Resolved]
  - Adrenocortical insufficiency acute [Recovered/Resolved]
  - Lymphocytic hypophysitis [Recovering/Resolving]
  - Encephalitis allergic [Recovering/Resolving]
  - Loss of consciousness [Unknown]
  - Renal impairment [Recovered/Resolved]
  - Encephalitis [Unknown]
  - Adrenal insufficiency [Unknown]
  - Orthostatic hypotension [Recovered/Resolved]
  - Head injury [Unknown]

NARRATIVE: CASE EVENT DATE: 20220316
